FAERS Safety Report 17118196 (Version 1)
Quarter: 2019Q4

REPORT INFORMATION
  Report Type: Spontaneous
  Country: US (occurrence: US)
  Receive Date: 20191205
  Receipt Date: 20191205
  Transmission Date: 20200122
  Serious: Yes (Death, Hospitalization)
  Sender: FDA-Public Use
  Company Number: NVSC2019US056815

PATIENT
  Age: 22 Year
  Sex: Female
  Weight: 78 kg

DRUGS (1)
  1. KYMRIAH [Suspect]
     Active Substance: TISAGENLECLEUCEL
     Indication: ACUTE LYMPHOCYTIC LEUKAEMIA RECURRENT
     Dosage: (1.1X10^8 CAR POSITIVE VIABLE T-CELLS IN 12 ML)
     Route: 065
     Dates: start: 20190924

REACTIONS (14)
  - Bacillus infection [Fatal]
  - Meningitis bacterial [Fatal]
  - Aphasia [Recovered/Resolved]
  - Coagulopathy [Unknown]
  - Cytokine release syndrome [Recovered/Resolved]
  - Blood fibrinogen decreased [Unknown]
  - Neurological symptom [Not Recovered/Not Resolved]
  - Pyrexia [Unknown]
  - C-reactive protein increased [Unknown]
  - Aphasia [Unknown]
  - Neurotoxicity [Recovered/Resolved with Sequelae]
  - Slow speech [Recovered/Resolved]
  - Hypotension [Unknown]
  - Serum ferritin increased [Unknown]

NARRATIVE: CASE EVENT DATE: 20190925
